FAERS Safety Report 5915544-0 (Version None)
Quarter: 2008Q4

REPORT INFORMATION
  Report Type: 
  Country: None (occurrence: None)
  Receive Date: 20081010
  Receipt Date: 20080722
  Transmission Date: 20090506
  Serious: Yes (Other)
  Sender: FDA-Public Use
  Company Number: A0738863A

PATIENT
  Age: 59 Year
  Sex: Female

DRUGS (2)
  1. TYKERB [Suspect]
     Dosage: 1250MG PER DAY
     Route: 048
     Dates: start: 20080501
  2. XELODA [Concomitant]
     Dosage: 1500MG PER DAY

REACTIONS (1)
  - BLOOD BILIRUBIN UNCONJUGATED INCREASED [None]
